FAERS Safety Report 5257354-6 (Version None)
Quarter: 2007Q1

REPORT INFORMATION
  Report Type: 
  Country: None (occurrence: None)
  Receive Date: 20061214
  Receipt Date: 20051230
  Transmission Date: 20070707
  Serious: Yes (Other)
  Sender: FDA-Public Use
  Company Number: 2006000198

PATIENT
  Age: 30 Year
  Sex: Male

DRUGS (1)
  1. UNISOM [Suspect]
     Dosage: 16 TABLETS AT ONCE, ORAL
     Route: 048
     Dates: start: 20051230, end: 20051230

REACTIONS (2)
  - MEDICATION ERROR [None]
  - OVERDOSE [None]
